FAERS Safety Report 11509945 (Version 1)
Quarter: 2015Q3

REPORT INFORMATION
  Report Type: Spontaneous
  Country: US (occurrence: US)
  Receive Date: 20150915
  Receipt Date: 20150915
  Transmission Date: 20151125
  Serious: No
  Sender: FDA-Public Use
  Company Number: US-JNJFOC-20150803327

PATIENT

DRUGS (1)
  1. TYLENOL WITH CODEINE [Suspect]
     Active Substance: ACETAMINOPHEN\CODEINE PHOSPHATE
     Indication: PAIN IN EXTREMITY
     Route: 065

REACTIONS (1)
  - Fatigue [Unknown]
